FAERS Safety Report 7984868-8 (Version None)
Quarter: 2011Q4

REPORT INFORMATION
  Report Type: 
  Country: None (occurrence: None)
  Receive Date: 20111216
  Receipt Date: 20110926
  Transmission Date: 20120403
  Serious: No
  Sender: FDA-Public Use
  Company Number: US-ALLERGAN-1112730US

PATIENT
  Age: 44 Year
  Sex: Female

DRUGS (3)
  1. LATISSE [Suspect]
     Indication: GROWTH OF EYELASHES
     Dosage: 1 GTT, QOD
     Route: 061
     Dates: start: 20110801, end: 20110923
  2. OTC EYE DROP BY BAUSCH AND LOMB [Concomitant]
     Dosage: UNK
     Route: 047
  3. LATISSE [Suspect]
     Dosage: UNK
     Dates: start: 20090101, end: 20110731

REACTIONS (6)
  - EYE PRURITUS [None]
  - OCULAR HYPERAEMIA [None]
  - INAPPROPRIATE SCHEDULE OF DRUG ADMINISTRATION [None]
  - EYELIDS PRURITUS [None]
  - EYELID OEDEMA [None]
  - ERYTHEMA OF EYELID [None]
